FAERS Safety Report 4719535-7 (Version None)
Quarter: 2005Q3

REPORT INFORMATION
  Report Type: 
  Country: None (occurrence: None)
  Receive Date: 20050719
  Receipt Date: 20050701
  Transmission Date: 20060218
  Serious: Yes (Hospitalization)
  Sender: FDA-Public Use
  Company Number: 2005001255

PATIENT
  Age: 68 Year
  Sex: Female

DRUGS (4)
  1. TARCEVA [Suspect]
     Indication: NON-SMALL CELL LUNG CANCER
     Dosage: 150MG (QD) ORAL
     Route: 048
     Dates: start: 20050511, end: 20050630
  2. AGGRENOX [Concomitant]
  3. DEXAMETHASONE [Concomitant]
  4. LEXAPRO [Concomitant]

REACTIONS (7)
  - BACTERIA BLOOD IDENTIFIED [None]
  - DIARRHOEA [None]
  - ILEUS PARALYTIC [None]
  - METASTASES TO CENTRAL NERVOUS SYSTEM [None]
  - PYREXIA [None]
  - RASH [None]
  - STAPHYLOCOCCAL INFECTION [None]
